FAERS Safety Report 8552573-5 (Version None)
Quarter: 2012Q3

REPORT INFORMATION
  Report Type: 
  Country: None (occurrence: None)
  Receive Date: 20120719
  Receipt Date: 20120705
  Transmission Date: 20120928
  Serious: Yes (Other)
  Sender: FDA-Public Use
  Company Number: 12-503

PATIENT
  Age: 59 Year
  Sex: Female
  Weight: 56 kg

DRUGS (3)
  1. ALEVE [Suspect]
     Dosage: ORAL
     Route: 048
     Dates: start: 20120628
  2. IMURAN [Concomitant]
  3. HUMIRA [Concomitant]

REACTIONS (2)
  - ANXIETY [None]
  - PETECHIAE [None]
